FAERS Safety Report 8207524-X (Version None)
Quarter: 2012Q1

REPORT INFORMATION
  Report Type: 
  Country: None (occurrence: None)
  Receive Date: 20120314
  Receipt Date: 20120312
  Transmission Date: 20120608
  Serious: Yes (Hospitalization)
  Sender: FDA-Public Use
  Company Number: IT-BRISTOL-MYERS SQUIBB COMPANY-16411852

PATIENT
  Age: 57 Year
  Sex: Female

DRUGS (1)
  1. COUMADIN [Suspect]
     Dates: start: 20110101, end: 20120120

REACTIONS (2)
  - BLOOD PRESSURE INCREASED [None]
  - SUBDURAL HAEMATOMA [None]
